FAERS Safety Report 4397370-X (Version None)
Quarter: 2004Q3

REPORT INFORMATION
  Report Type: 
  Country: None (occurrence: None)
  Receive Date: 20040714
  Receipt Date: 20040603
  Transmission Date: 20050211
  Serious: Yes (Hospitalization)
  Sender: FDA-Public Use
  Company Number: DO-BRISTOL-MYERS SQUIBB COMPANY-12639068

PATIENT
  Age: 82 Year
  Sex: Male
  Weight: 70 kg

DRUGS (1)
  1. APROVEL TABS [Suspect]
     Indication: HYPERTENSION
     Dosage: TOTAL DURATION= 1 YEAR AND 5 MONTHS
     Route: 048
     Dates: start: 20020101, end: 20040601

REACTIONS (4)
  - ANAEMIA [None]
  - EAR HAEMORRHAGE [None]
  - EPISTAXIS [None]
  - PHARYNGEAL HAEMORRHAGE [None]
